FAERS Safety Report 5454991-0 (Version None)
Quarter: 2007Q3

REPORT INFORMATION
  Report Type: 
  Country: None (occurrence: None)
  Receive Date: 20070913
  Receipt Date: 20070906
  Transmission Date: 20080115
  Serious: Yes (Hospitalization, Other)
  Sender: FDA-Public Use
  Company Number: 2007SP014751

PATIENT
  Age: 64 Year
  Sex: Male
  Weight: 105 kg

DRUGS (5)
  1. TEMOZOLOMIDE [Suspect]
     Indication: METASTATIC MALIGNANT MELANOMA
     Dosage: 20 MG; QD; PO
     Route: 048
     Dates: start: 20070406
  2. TEMOZOLOMIDE [Suspect]
     Indication: METASTATIC MALIGNANT MELANOMA
     Dosage: 20 MG; QD; PO
     Route: 048
     Dates: start: 20070420
  3. TEMOZOLOMIDE [Suspect]
     Indication: METASTATIC MALIGNANT MELANOMA
     Dosage: 20 MG; QD; PO
     Route: 048
     Dates: start: 20070504
  4. PERINDOPRIL ERBUMINE [Concomitant]
  5. ENALAPRIL MALEATE [Concomitant]

REACTIONS (1)
  - RENAL FAILURE [None]
